FAERS Safety Report 7985939-2 (Version None)
Quarter: 2011Q4

REPORT INFORMATION
  Report Type: 
  Country: None (occurrence: None)
  Receive Date: 20111216
  Receipt Date: 20111214
  Transmission Date: 20120403
  Serious: Yes (Death, Hospitalization)
  Sender: FDA-Public Use
  Company Number: GR-B.I. PHARMACEUTICALS,INC./RIDGEFIELD-2011-EU-01142GB

PATIENT
  Age: 63 Year
  Sex: Female
  Weight: 100 kg

DRUGS (5)
  1. CEPHALOSPORIN [Concomitant]
     Dates: end: 20111209
  2. MEDROL [Concomitant]
     Dates: start: 20111209
  3. PRADAXA [Suspect]
     Indication: ATRIAL FIBRILLATION
     Dosage: 110MG X 2
     Route: 048
     Dates: start: 20111129
  4. SINTROM [Concomitant]
     Indication: ATRIAL FIBRILLATION
     Dates: end: 20111125
  5. LASIX [Concomitant]
     Indication: DIURETIC THERAPY

REACTIONS (5)
  - PULMONARY HAEMORRHAGE [None]
  - BLOOD CREATININE INCREASED [None]
  - MOUTH HAEMORRHAGE [None]
  - VAGINAL HAEMORRHAGE [None]
  - EPISTAXIS [None]
